FAERS Safety Report 15996234 (Version 2)
Quarter: 2019Q1

REPORT INFORMATION
  Report Type: Report from Study
  Country: US (occurrence: US)
  Receive Date: 20190222
  Receipt Date: 20190320
  Transmission Date: 20190418
  Serious: Yes (Hospitalization)
  Sender: FDA-Public Use
  Company Number: US-BAYER-2018-226829

PATIENT
  Age: 55 Year
  Sex: Male

DRUGS (3)
  1. STIVARGA [Suspect]
     Active Substance: REGORAFENIB
     Indication: COLORECTAL CANCER
     Dosage: 80 MG DAILY
     Dates: start: 20181119, end: 20181203
  2. STIVARGA [Suspect]
     Active Substance: REGORAFENIB
     Indication: COLORECTAL CANCER
     Dosage: 160 MG DAILY
     Route: 048
     Dates: start: 20181204, end: 2019
  3. STIVARGA [Suspect]
     Active Substance: REGORAFENIB
     Indication: COLORECTAL CANCER
     Dosage: 80 MG, QD 21 DAYS ON AND 7 DAYS OFF
     Route: 048
     Dates: start: 20190218

REACTIONS (14)
  - Productive cough [None]
  - Sinus congestion [None]
  - Oropharyngeal pain [None]
  - Pain in extremity [None]
  - Dehydration [None]
  - Upper respiratory tract infection [None]
  - Skin fissures [Recovering/Resolving]
  - Off label use [None]
  - Dysgeusia [Not Recovered/Not Resolved]
  - Fatigue [None]
  - Cough [None]
  - Dysphonia [Recovered/Resolved]
  - Decreased appetite [Not Recovered/Not Resolved]
  - Decreased activity [None]

NARRATIVE: CASE EVENT DATE: 2018
